FAERS Safety Report 16032552 (Version 1)
Quarter: 2019Q1

REPORT INFORMATION
  Report Type: Report from Study
  Country: None (occurrence: US)
  Receive Date: 20190304
  Receipt Date: 20190304
  Transmission Date: 20190418
  Serious: Yes (Other)
  Sender: FDA-Public Use
  Company Number: US-ABBVIE-19K-163-2686025-00

PATIENT
  Age: 58 Year
  Sex: Female

DRUGS (1)
  1. HUMIRA [Suspect]
     Active Substance: ADALIMUMAB
     Indication: RHEUMATOID ARTHRITIS
     Route: 058
     Dates: end: 2019

REACTIONS (7)
  - Systemic lupus erythematosus [Not Recovered/Not Resolved]
  - Myalgia [Unknown]
  - Cough [Unknown]
  - Nasal congestion [Not Recovered/Not Resolved]
  - Nausea [Unknown]
  - Drug effect incomplete [Unknown]
  - Arthralgia [Unknown]

NARRATIVE: CASE EVENT DATE: 20190224
